FAERS Safety Report 22589622 (Version 1)
Quarter: 2023Q2

REPORT INFORMATION
  Report Type: Spontaneous
  Country: CA (occurrence: CA)
  Receive Date: 20230612
  Receipt Date: 20230612
  Transmission Date: 20230721
  Serious: Yes (Other)
  Sender: FDA-Public Use
  Company Number: CA-PFIZER INC-PV202300101669

PATIENT
  Age: 68 Year
  Sex: Male

DRUGS (1)
  1. TAFAMIDIS [Suspect]
     Active Substance: TAFAMIDIS
     Indication: Familial amyloidosis
     Dosage: UNK

REACTIONS (2)
  - Cardiac failure [Unknown]
  - Dyspnoea [Unknown]
